FAERS Safety Report 4585723-6 (Version None)
Quarter: 2005Q1

REPORT INFORMATION
  Report Type: 
  Country: None (occurrence: None)
  Receive Date: 20050214
  Receipt Date: 20041018
  Transmission Date: 20050727
  Serious: Yes (Death)
  Sender: FDA-Public Use
  Company Number: 05-104

PATIENT
  Age: 62 Year
  Sex: Male

DRUGS (12)
  1. DEXAMETHASONE [Suspect]
     Indication: MULTIPLE MYELOMA
     Dosage: 7 MG/KG/DAY, INTRAVENOUS
     Route: 042
     Dates: start: 20030112, end: 20030702
  2. GENASENSE [Suspect]
     Indication: MULTIPLE MYELOMA
     Dosage: 7 MG/KG/DAY, INTRAVENOUS
     Route: 042
     Dates: start: 20030112, end: 20030718
  3. GLYBURIDE [Concomitant]
  4. INSULIN [Concomitant]
  5. PIOGLITAZONE [Concomitant]
  6. VALSARTAN [Concomitant]
  7. NIFEDIPINE [Concomitant]
  8. GEMFIBROZIL [Concomitant]
  9. CELECOXIB [Concomitant]
  10. MULTI-VITAMIN [Concomitant]
  11. TRIMETHOPRIM-SULFAMETHOXAZOLE [Concomitant]
  12. RANITIDINE [Concomitant]

REACTIONS (12)
  - BLOOD CREATINE INCREASED [None]
  - CARDIOMEGALY [None]
  - CIRCULATORY COLLAPSE [None]
  - CORONARY ARTERY ATHEROSCLEROSIS [None]
  - DEHYDRATION [None]
  - DYSTROPHIC CALCIFICATION [None]
  - GLOMERULONEPHRITIS FOCAL [None]
  - HYPERGLYCAEMIA [None]
  - MYOCARDIAL FIBROSIS [None]
  - MYOCARDIAL ISCHAEMIA [None]
  - PAPILLARY MUSCLE INFARCTION [None]
  - VENTRICULAR ARRHYTHMIA [None]
